FAERS Safety Report 7065914-5 (Version None)
Quarter: 2010Q4

REPORT INFORMATION
  Report Type: 
  Country: None (occurrence: None)
  Receive Date: 20101027
  Receipt Date: 20101022
  Transmission Date: 20110411
  Serious: Yes (Other)
  Sender: FDA-Public Use
  Company Number: JP-MERCK-1004USA00360

PATIENT
  Age: 38 Year
  Sex: Male

DRUGS (3)
  1. JANUVIA [Suspect]
     Indication: DIABETES MELLITUS
     Route: 048
     Dates: start: 20091109, end: 20091207
  2. JANUVIA [Suspect]
     Route: 048
     Dates: start: 20100108, end: 20100301
  3. JANUVIA [Suspect]
     Route: 048
     Dates: start: 20100701, end: 20100901

REACTIONS (2)
  - AZOOSPERMIA [None]
  - SPERM COUNT DECREASED [None]
